FAERS Safety Report 15229717 (Version 6)
Quarter: 2019Q1

REPORT INFORMATION
  Report Type: Report from Study
  Country: US (occurrence: US)
  Receive Date: 20180802
  Receipt Date: 20190326
  Transmission Date: 20190417
  Serious: Yes (Hospitalization, Other)
  Sender: FDA-Public Use
  Company Number: US-ASTELLAS-2018US033920

PATIENT
  Age: 57 Year
  Sex: Male

DRUGS (2)
  1. TACROLIMUS. [Suspect]
     Active Substance: TACROLIMUS
     Indication: PRODUCT USED FOR UNKNOWN INDICATION
     Route: 065
     Dates: start: 20130704, end: 20181005
  2. TACROLIMUS. [Suspect]
     Active Substance: TACROLIMUS
     Dosage: 0.5 MG, ONCE DAILY
     Route: 065
     Dates: start: 20130704, end: 20180406

REACTIONS (9)
  - Blindness [Unknown]
  - Lumbar vertebral fracture [Recovering/Resolving]
  - Device related infection [Recovered/Resolved]
  - Atrial fibrillation [Not Recovered/Not Resolved]
  - Fall [Unknown]
  - Vascular procedure complication [Not Recovered/Not Resolved]
  - Shock [Unknown]
  - Eye haemorrhage [Unknown]
  - Renal transplant failure [Unknown]

NARRATIVE: CASE EVENT DATE: 20180120
